FAERS Safety Report 5379194-X (Version None)
Quarter: 2007Q3

REPORT INFORMATION
  Report Type: 
  Country: None (occurrence: None)
  Receive Date: 20070705
  Receipt Date: 20070703
  Transmission Date: 20080115
  Serious: Yes (Hospitalization)
  Sender: FDA-Public Use
  Company Number: US-BAXTER-2007BH005109

PATIENT
  Age: 81 Year
  Sex: Male
  Weight: 89 kg

DRUGS (27)
  1. DOBUTAMINE HYDROCHLORIDE [Suspect]
     Indication: CARDIAC FAILURE CONGESTIVE
     Dosage: DOSE UNIT:
     Route: 042
     Dates: start: 20070524, end: 20070524
  2. DOBUTAMINE HYDROCHLORIDE [Suspect]
     Dosage: DOSE UNIT:
     Route: 042
     Dates: start: 20070524, end: 20070524
  3. DOBUTAMINE HYDROCHLORIDE [Suspect]
     Dosage: DOSE UNIT:
     Route: 042
     Dates: start: 20070605, end: 20070605
  4. DOBUTAMINE HYDROCHLORIDE [Suspect]
     Dosage: DOSE UNIT:
     Route: 042
     Dates: start: 20070605, end: 20070605
  5. DOPAMINE HCL [Concomitant]
     Indication: BLOOD PRESSURE
     Route: 042
  6. ATROVENT [Concomitant]
     Indication: DRUG USE FOR UNKNOWN INDICATION
     Dosage: DOSE UNIT:UNKNOWN
     Route: 055
  7. TYLENOL [Concomitant]
     Indication: PYREXIA
     Dosage: DOSE UNIT:UNKNOWN
     Route: 054
  8. ENABLEX [Concomitant]
     Indication: DRUG USE FOR UNKNOWN INDICATION
     Route: 048
  9. ALLOPURINOL [Concomitant]
     Indication: DRUG USE FOR UNKNOWN INDICATION
     Route: 048
  10. LASIX [Concomitant]
     Indication: DRUG USE FOR UNKNOWN INDICATION
     Route: 048
  11. SYNTHROID [Concomitant]
     Indication: DRUG USE FOR UNKNOWN INDICATION
     Route: 048
  12. ARICEPT [Concomitant]
     Indication: DRUG USE FOR UNKNOWN INDICATION
     Route: 048
  13. AVODART [Concomitant]
     Indication: DRUG USE FOR UNKNOWN INDICATION
     Route: 048
  14. SULAR [Concomitant]
     Indication: DRUG USE FOR UNKNOWN INDICATION
     Route: 048
  15. COREG [Concomitant]
     Indication: DRUG USE FOR UNKNOWN INDICATION
     Route: 048
  16. K-DUR 10 [Concomitant]
     Indication: DRUG USE FOR UNKNOWN INDICATION
     Route: 048
  17. PACERONE [Concomitant]
     Indication: DRUG USE FOR UNKNOWN INDICATION
     Route: 048
  18. COUMADIN [Concomitant]
     Indication: DRUG USE FOR UNKNOWN INDICATION
     Route: 048
  19. ZOCOR [Concomitant]
     Indication: DRUG USE FOR UNKNOWN INDICATION
     Route: 048
  20. ASPIRIN [Concomitant]
     Indication: DRUG USE FOR UNKNOWN INDICATION
     Route: 048
  21. BENICAR [Concomitant]
     Indication: DRUG USE FOR UNKNOWN INDICATION
     Route: 048
  22. M.V.I. [Concomitant]
     Indication: DRUG USE FOR UNKNOWN INDICATION
     Dosage: DOSE UNIT:UNKNOWN
     Route: 048
  23. COQ-10 VITAMIN [Concomitant]
     Indication: DRUG USE FOR UNKNOWN INDICATION
     Dosage: DOSE UNIT:UNKNOWN
     Route: 048
  24. CALCIUM CHLORIDE [Concomitant]
     Indication: DRUG USE FOR UNKNOWN INDICATION
     Route: 048
  25. PROVENTIL-HFA [Concomitant]
     Indication: DRUG USE FOR UNKNOWN INDICATION
     Dosage: DOSE UNIT:UNKNOWN
     Route: 055
  26. PERIACTIN [Concomitant]
     Indication: BLOOD PRESSURE
     Route: 065
  27. PHENERGAN HCL [Concomitant]
     Indication: NAUSEA
     Route: 030

REACTIONS (4)
  - CULTURE POSITIVE [None]
  - ENTEROCOCCAL SEPSIS [None]
  - HYPOTENSION [None]
  - PHARMACEUTICAL PRODUCT COMPLAINT [None]
